FAERS Safety Report 13307676 (Version 6)
Quarter: 2017Q3

REPORT INFORMATION
  Report Type: Spontaneous
  Country: TW (occurrence: TW)
  Receive Date: 20170308
  Receipt Date: 20170919
  Transmission Date: 20171127
  Serious: Yes (Death, Hospitalization, Other)
  Sender: FDA-Public Use
  Company Number: TW-ELI_LILLY_AND_COMPANY-TW201703001600

PATIENT
  Age: 81 Year
  Sex: Female

DRUGS (2)
  1. FORTEO [Suspect]
     Active Substance: TERIPARATIDE
     Indication: OSTEOPOROSIS
     Dosage: 20 UG, QD
     Route: 058
     Dates: start: 20160614, end: 20170307
  2. FORTEO [Suspect]
     Active Substance: TERIPARATIDE
     Indication: COMPRESSION FRACTURE

REACTIONS (11)
  - Pneumonia [Fatal]
  - Muscular weakness [Not Recovered/Not Resolved]
  - Dyspnoea [Unknown]
  - Sciatica [Not Recovered/Not Resolved]
  - Cardiopulmonary failure [Fatal]
  - Thyroid mass [Unknown]
  - Septic shock [Fatal]
  - Wound infection [Fatal]
  - Spinal compression fracture [Not Recovered/Not Resolved]
  - Lung adenocarcinoma [Not Recovered/Not Resolved]
  - Back pain [Not Recovered/Not Resolved]

NARRATIVE: CASE EVENT DATE: 201703
